FAERS Safety Report 15132262 (Version 2)
Quarter: 2018Q3

REPORT INFORMATION
  Report Type: Spontaneous
  Country: FR (occurrence: FR)
  Receive Date: 20180711
  Receipt Date: 20180712
  Transmission Date: 20181010
  Serious: Yes (Death)
  Sender: FDA-Public Use
  Company Number: FR-009507513-1807FRA004887

PATIENT
  Age: 52 Year
  Sex: Female
  Weight: 85 kg

DRUGS (6)
  1. OLANZAPINE. [Suspect]
     Active Substance: OLANZAPINE
     Indication: MENTAL DISORDER
     Dosage: 20 MG, QD
     Route: 048
  2. MIRTAZAPINE. [Suspect]
     Active Substance: MIRTAZAPINE
     Dosage: 15 MG, QD
     Route: 048
  3. LOXAPAC (LOXAPINE SUCCINATE) [Suspect]
     Active Substance: LOXAPINE SUCCINATE
     Indication: MENTAL DISORDER
     Dosage: 5 DF, QD
     Route: 048
  4. SERESTA [Concomitant]
     Active Substance: OXAZEPAM
     Dosage: 3 DF, QD
     Route: 048
  5. TERCIAN [Suspect]
     Active Substance: CYAMEMAZINE
     Indication: MENTAL DISORDER
     Dosage: 3 DF, QD
     Route: 048
  6. PAROXETINE HYDROCHLORIDE. [Suspect]
     Active Substance: PAROXETINE HYDROCHLORIDE
     Indication: MENTAL DISORDER
     Dosage: 20 MG, QD
     Route: 048

REACTIONS (3)
  - Intestinal infarction [Fatal]
  - Intestinal obstruction [Fatal]
  - Constipation [Fatal]

NARRATIVE: CASE EVENT DATE: 201805
